FAERS Safety Report 9294998 (Version 1)
Quarter: 2013Q2

REPORT INFORMATION
  Report Type: Spontaneous
  Country: TH (occurrence: TH)
  Receive Date: 20130517
  Receipt Date: 20130517
  Transmission Date: 20140414
  Serious: Yes (Hospitalization, Other)
  Sender: FDA-Public Use
  Company Number: PHHY2013TH049066

PATIENT
  Age: 72 Year
  Sex: Male

DRUGS (2)
  1. GLIVEC [Suspect]
     Indication: GASTROINTESTINAL STROMAL TUMOUR
     Dosage: 400 MG, UNK
     Route: 048
  2. GLIVEC [Suspect]
     Dosage: 400 MG, UNK
     Route: 048

REACTIONS (5)
  - Hypoglycaemia [Recovered/Resolved]
  - Hypophagia [Recovered/Resolved]
  - Oedema peripheral [Recovering/Resolving]
  - Face oedema [Recovering/Resolving]
  - Rash generalised [Recovering/Resolving]
